FAERS Safety Report 25591091 (Version 1)
Quarter: 2025Q3

REPORT INFORMATION
  Report Type: Spontaneous
  Country: US (occurrence: None)
  Receive Date: 20250722
  Receipt Date: 20250722
  Transmission Date: 20251021
  Serious: Yes (Hospitalization)
  Sender: FDA-CTU
  Company Number: None

PATIENT
  Age: 71 Year
  Sex: Male
  Weight: 56 kg

DRUGS (3)
  1. FLUOROURACIL [Suspect]
     Active Substance: FLUOROURACIL
  2. LEUCOVORIN CALCIUM [Suspect]
     Active Substance: LEUCOVORIN CALCIUM
  3. ELOXATIN [Suspect]
     Active Substance: OXALIPLATIN

REACTIONS (10)
  - Drug monitoring procedure not performed [None]
  - Hyperglycaemia [None]
  - Paraesthesia [None]
  - Vision blurred [None]
  - Polyuria [None]
  - Polydipsia [None]
  - Blood ketone body [None]
  - Aspartate aminotransferase increased [None]
  - Alanine aminotransferase increased [None]
  - Bundle branch block right [None]

NARRATIVE: CASE EVENT DATE: 20250720
